FAERS Safety Report 8850156 (Version 1)
Quarter: 2012Q4

REPORT INFORMATION
  Report Type: 
  Country: CO (occurrence: CO)
  Receive Date: 20121019
  Receipt Date: 20121019
  Transmission Date: 20130627
  Serious: Yes (Hospitalization)
  Sender: FDA-Public Use
  Company Number: CO-VIIV HEALTHCARE LIMITED-A0997920A

PATIENT
  Age: 40 Year
  Sex: Male

DRUGS (2)
  1. KIVEXA [Suspect]
     Indication: HIV INFECTION
     Dosage: 1TAB Per day
     Route: 048
     Dates: start: 20120702, end: 20120910
  2. RALTEGRAVIR [Concomitant]
     Indication: HIV INFECTION
     Dosage: 400MG Twice per day
     Route: 048
     Dates: start: 20120702, end: 20120910

REACTIONS (1)
  - Skin exfoliation [Recovered/Resolved]
